FAERS Safety Report 6711543-X (Version None)
Quarter: 2010Q2

REPORT INFORMATION
  Report Type: 
  Country: None (occurrence: None)
  Receive Date: 20100505
  Receipt Date: 20100422
  Transmission Date: 20101027
  Serious: Yes (Other)
  Sender: FDA-Public Use
  Company Number: PHHY2010NL25831

PATIENT
  Sex: Female

DRUGS (3)
  1. ZOMETA [Suspect]
     Dosage: 4 MG /5 ML IN 20 MINUTES
     Route: 042
     Dates: start: 20090421
  2. ZOMETA [Suspect]
     Dosage: 4 MG /5 ML IN 20 MINUTES
     Route: 042
     Dates: start: 20091020
  3. ZOMETA [Suspect]
     Dosage: 4 MG /5 ML IN 20 MINUTES
     Route: 042
     Dates: start: 20100421

REACTIONS (2)
  - NECK PAIN [None]
  - NEOPLASM [None]
